FAERS Safety Report 23060126 (Version 1)
Quarter: 2023Q4

REPORT INFORMATION
  Report Type: Spontaneous
  Country: US (occurrence: US)
  Receive Date: 20231012
  Receipt Date: 20231012
  Transmission Date: 20240110
  Serious: Yes (Hospitalization, Other)
  Sender: FDA-Public Use
  Company Number: US-SPECGX-T202301994

PATIENT
  Age: 71 Year
  Sex: Male

DRUGS (3)
  1. METHADONE [Interacting]
     Active Substance: METHADONE HYDROCHLORIDE
     Indication: Drug withdrawal maintenance therapy
     Dosage: UNK
     Route: 065
  2. DILTIAZEM [Interacting]
     Active Substance: DILTIAZEM
     Indication: Atrial fibrillation
     Dosage: UNK
     Route: 042
  3. DILTIAZEM [Interacting]
     Active Substance: DILTIAZEM
     Dosage: UNK
     Route: 048

REACTIONS (9)
  - Ileus [Unknown]
  - Atrial fibrillation [Unknown]
  - Respiratory syncytial virus infection [Unknown]
  - Haemodynamic instability [Unknown]
  - Chronic obstructive pulmonary disease [Unknown]
  - Condition aggravated [Unknown]
  - Drug interaction [Unknown]
  - Tracheostomy [Unknown]
  - Mechanical ventilation [Unknown]
